FAERS Safety Report 4426536-5 (Version None)
Quarter: 2004Q3

REPORT INFORMATION
  Report Type: 
  Country: None (occurrence: None)
  Receive Date: 20040816
  Receipt Date: 20020726
  Transmission Date: 20050211
  Serious: Yes (Hospitalization)
  Sender: FDA-Public Use
  Company Number: PHHO2002BE05700

PATIENT
  Age: 43 Year
  Sex: Female
  Weight: 64 kg

DRUGS (3)
  1. TEGASEROD VS PLACEBO [Suspect]
     Indication: CONSTIPATION
     Dosage: 6 MG, BID
     Route: 048
     Dates: start: 20020604, end: 20020623
  2. CAPOTEN [Concomitant]
     Indication: URINARY TRACT INFECTION
  3. BRUFEN [Concomitant]
     Indication: ABDOMINAL PAIN

REACTIONS (6)
  - ENDOMETRIOSIS [None]
  - HAEMORRHAGIC OVARIAN CYST [None]
  - MALIGNANT OVARIAN CYST [None]
  - OEDEMA PERIPHERAL [None]
  - OVARIAN CYST [None]
  - OVARIAN CYSTECTOMY [None]
